FAERS Safety Report 6988450-0 (Version None)
Quarter: 2010Q3

REPORT INFORMATION
  Report Type: 
  Country: None (occurrence: None)
  Receive Date: 20100916
  Receipt Date: 20100908
  Transmission Date: 20110219
  Serious: Yes (Hospitalization)
  Sender: FDA-Public Use
  Company Number: IL-TEVA-248167ISR

PATIENT
  Age: 83 Year
  Sex: Male

DRUGS (1)
  1. NIFEDIPINE [Suspect]

REACTIONS (4)
  - COUGH [None]
  - INTESTINAL OBSTRUCTION [None]
  - MEMORY IMPAIRMENT [None]
  - OEDEMA PERIPHERAL [None]
